FAERS Safety Report 18806112 (Version 1)
Quarter: 2021Q1

REPORT INFORMATION
  Report Type: Spontaneous
  Country: CA (occurrence: CA)
  Receive Date: 20210128
  Receipt Date: 20210128
  Transmission Date: 20210419
  Serious: Yes (Other)
  Sender: FDA-Public Use
  Company Number: CA-ALLERGAN-2104148US

PATIENT
  Sex: Male

DRUGS (16)
  1. ACETAZOLAMIDE. [Concomitant]
     Active Substance: ACETAZOLAMIDE
  2. GRAVOL [Concomitant]
     Active Substance: DIMENHYDRINATE
  3. LANTUS [Concomitant]
     Active Substance: INSULIN GLARGINE
  4. COMBIGAN [Suspect]
     Active Substance: BRIMONIDINE TARTRATE\TIMOLOL MALEATE
     Indication: GLAUCOMA
     Dosage: 1 GTT, BID
     Route: 047
  5. CALCIUM [Concomitant]
     Active Substance: CALCIUM
  6. ASPIRIN. [Concomitant]
     Active Substance: ASPIRIN
  7. GABAPENTIN. [Concomitant]
     Active Substance: GABAPENTIN
  8. PERINDOPRIL [Concomitant]
     Active Substance: PERINDOPRIL
  9. AMITRIPTYLINE [Concomitant]
     Active Substance: AMITRIPTYLINE
  10. BISOPROLOL [Concomitant]
     Active Substance: BISOPROLOL
  11. LATANOPROST. [Concomitant]
     Active Substance: LATANOPROST
  12. ROSUVASTATIN. [Concomitant]
     Active Substance: ROSUVASTATIN
  13. TYLENOL WITH CODEINE [Concomitant]
     Active Substance: ACETAMINOPHEN\CODEINE PHOSPHATE
  14. VITAMIN C [Concomitant]
     Active Substance: ASCORBIC ACID
  15. FERROUS FUMARATE [Concomitant]
     Active Substance: FERROUS FUMARATE
  16. VITAMIN D [Concomitant]
     Active Substance: VITAMIN D NOS

REACTIONS (3)
  - Impaired self-care [Recovered/Resolved]
  - Emotional distress [Recovered/Resolved]
  - Hallucination [Recovered/Resolved]
